FAERS Safety Report 5401068-6 (Version None)
Quarter: 2007Q3

REPORT INFORMATION
  Report Type: 
  Country: None (occurrence: None)
  Receive Date: 20070731
  Receipt Date: 20070724
  Transmission Date: 20080115
  Serious: Yes (Other)
  Sender: FDA-Public Use
  Company Number: JP-JNJFOC-20070706360

PATIENT
  Age: 46 Year
  Sex: Female

DRUGS (4)
  1. ITRACONAZOLE [Suspect]
     Indication: PROPHYLAXIS
     Route: 048
  2. ITRACONAZOLE [Suspect]
     Route: 048
  3. VINCRISTINE [Suspect]
     Route: 042
  4. VINCRISTINE [Suspect]
     Indication: LYMPHOMA
     Route: 042

REACTIONS (2)
  - HYPONATRAEMIA [None]
  - MYALGIA [None]
